FAERS Safety Report 11180189 (Version 1)
Quarter: 2015Q2

REPORT INFORMATION
  Report Type: Spontaneous
  Country: TN (occurrence: None)
  Receive Date: 20150609
  Receipt Date: 20150609
  Transmission Date: 20150821
  Serious: Yes (Hospitalization)
  Sender: FDA-Public Use
  Company Number: FK201502600

PATIENT
  Age: 16 Year
  Sex: Female

DRUGS (3)
  1. ETOPOSIDE (MANUFACTURER UNKNOWN) (ETOPOSIDE) (ETOPOSIDE) [Suspect]
     Active Substance: ETOPOSIDE
     Indication: PERITONEAL GLIOMATOSIS
     Dosage: CYCLICAL
     Route: 042
  2. BLEOMYCIN [Suspect]
     Active Substance: BLEOMYCIN SULFATE
     Indication: PERITONEAL GLIOMATOSIS
     Dosage: CYCLICAL
     Route: 042
  3. CISPLATIN (MANUFACTURER UNKNOWN) (CISPLATIN) (CISPLATIN) [Suspect]
     Active Substance: CISPLATIN
     Indication: PERITONEAL GLIOMATOSIS
     Dosage: CYCLICAL
     Route: 042

REACTIONS (1)
  - Intracranial venous sinus thrombosis [None]
